FAERS Safety Report 6285215-2 (Version None)
Quarter: 2009Q3

REPORT INFORMATION
  Report Type: 
  Country: None (occurrence: None)
  Receive Date: 20090727
  Receipt Date: 20090721
  Transmission Date: 20100115
  Serious: Yes (Death, Hospitalization, Other)
  Sender: FDA-Public Use
  Company Number: PHHY2009IT30691

PATIENT
  Age: 61 Year
  Sex: Female

DRUGS (4)
  1. CYCLOSPORINE [Suspect]
     Indication: LIVER TRANSPLANT
     Dosage: UNK
  2. MYCOPHENOLATE MOFETIL [Suspect]
     Indication: LIVER TRANSPLANT
  3. PREDNISONE TAB [Suspect]
     Indication: LIVER TRANSPLANT
     Dosage: UNK
  4. TACROLIMUS [Concomitant]
     Indication: IMMUNOSUPPRESSION

REACTIONS (11)
  - B-CELL LYMPHOMA [None]
  - CACHEXIA [None]
  - CYTOMEGALOVIRUS INFECTION [None]
  - ENTEROCOCCAL INFECTION [None]
  - FUSARIUM INFECTION [None]
  - HEPATIC FAILURE [None]
  - HYPOGAMMAGLOBULINAEMIA [None]
  - LEUKOPENIA [None]
  - LUNG NEOPLASM [None]
  - PLEURAL EFFUSION [None]
  - PYREXIA [None]
